FAERS Safety Report 7113957-5 (Version None)
Quarter: 2010Q4

REPORT INFORMATION
  Report Type: 
  Country: None (occurrence: None)
  Receive Date: 20101119
  Receipt Date: 20101112
  Transmission Date: 20110411
  Serious: Yes (Hospitalization)
  Sender: FDA-Public Use
  Company Number: A0865104A

PATIENT
  Age: 52 Year
  Sex: Female

DRUGS (3)
  1. AVANDIA [Suspect]
     Dosage: 4MG TWICE PER DAY
     Dates: start: 20060201, end: 20070801
  2. AVANDAMET [Suspect]
     Route: 048
     Dates: start: 20050301, end: 20050401
  3. AVANDARYL [Suspect]
     Route: 048
     Dates: start: 20070801, end: 20080301

REACTIONS (3)
  - CARDIAC FAILURE CONGESTIVE [None]
  - CEREBROVASCULAR ACCIDENT [None]
  - MYOCARDIAL INFARCTION [None]
